FAERS Safety Report 22362926 (Version 1)
Quarter: 2023Q2

REPORT INFORMATION
  Report Type: Spontaneous
  Country: US (occurrence: US)
  Receive Date: 20230525
  Receipt Date: 20230525
  Transmission Date: 20230722
  Serious: No
  Sender: FDA-Public Use
  Company Number: US-UCBSA-2022033051

PATIENT
  Sex: Female
  Weight: 78.6 kg

DRUGS (1)
  1. CIMZIA [Suspect]
     Active Substance: CERTOLIZUMAB PEGOL
     Indication: Rheumatoid arthritis
     Dosage: 200 MILLIGRAM, EVERY 10 DAYS
     Route: 058

REACTIONS (3)
  - Headache [Unknown]
  - Product dose omission issue [Unknown]
  - Off label use [Unknown]
